FAERS Safety Report 13655966 (Version 1)
Quarter: 2017Q2

REPORT INFORMATION
  Report Type: Report from Study
  Country: US (occurrence: US)
  Receive Date: 20170615
  Receipt Date: 20170615
  Transmission Date: 20170830
  Serious: Yes (Hospitalization)
  Sender: FDA-Public Use
  Company Number: US-BAYER-2017-059935

PATIENT
  Age: 70 Year
  Sex: Male

DRUGS (2)
  1. STIVARGA [Suspect]
     Active Substance: REGORAFENIB
     Indication: COLON CANCER
     Dosage: 3 TABLETS DAILY FOR 14 DAYS ON AND 14 DAYS OFF
     Route: 048
     Dates: start: 2017, end: 2017
  2. STIVARGA [Suspect]
     Active Substance: REGORAFENIB
     Indication: COLON CANCER
     Dosage: 120 MG FOR 21 DAYS AND 7 DAYS OFF
     Route: 048
     Dates: start: 20170306, end: 2017

REACTIONS (3)
  - Adverse drug reaction [None]
  - Hospitalisation [None]
  - Off label use [None]
